FAERS Safety Report 8591248-3 (Version None)
Quarter: 2012Q3

REPORT INFORMATION
  Report Type: 
  Country: None (occurrence: None)
  Receive Date: 20120813
  Receipt Date: 20120802
  Transmission Date: 20120928
  Serious: Yes (Death)
  Sender: FDA-Public Use
  Company Number: NL-TEVA-352277ISR

PATIENT
  Sex: Male

DRUGS (5)
  1. FLURAZEPAM [Concomitant]
     Dosage: 5 MG
  2. COPAXONE [Suspect]
     Dosage: 20 MILLIGRAM DAILY;
     Route: 058
     Dates: start: 20080909
  3. CITALOPRAM HYDROBROMIDE [Concomitant]
  4. DIAZEPAM [Concomitant]
     Dosage: 80 MILLIGRAM DAILY;
  5. OXAZEPAM [Concomitant]

REACTIONS (1)
  - CARDIAC ARREST [None]
